FAERS Safety Report 18386091 (Version 2)
Quarter: 2020Q4

REPORT INFORMATION
  Report Type: Spontaneous
  Country: US (occurrence: US)
  Receive Date: 20201015
  Receipt Date: 20201211
  Transmission Date: 20210114
  Serious: No
  Sender: FDA-Public Use
  Company Number: US-ASTRAZENECA-2020SF28530

PATIENT
  Age: 16909 Day
  Sex: Male
  Weight: 79.4 kg

DRUGS (4)
  1. FASENRA [Concomitant]
     Active Substance: BENRALIZUMAB
     Indication: ASTHMA
     Dosage: 30 MG EVERY 6 WEEKS
     Route: 058
  2. FASENRA [Suspect]
     Active Substance: BENRALIZUMAB
     Indication: ASTHMA
     Route: 058
     Dates: start: 2020
  3. FASENRA [Suspect]
     Active Substance: BENRALIZUMAB
     Indication: ASTHMA
     Dosage: 30 MG EVERY 6 WEEKS
     Route: 058
     Dates: start: 2020
  4. FASENRA [Concomitant]
     Active Substance: BENRALIZUMAB
     Indication: ASTHMA
     Route: 058

REACTIONS (7)
  - Injection site vesicles [Unknown]
  - Drug delivery system malfunction [Unknown]
  - Incorrect dose administered by device [Not Recovered/Not Resolved]
  - Insurance issue [Unknown]
  - Injection site pain [Unknown]
  - Product dose omission issue [Recovered/Resolved]
  - Device leakage [Unknown]

NARRATIVE: CASE EVENT DATE: 20200929
